FAERS Safety Report 5982356-1 (Version None)
Quarter: 2008Q4

REPORT INFORMATION
  Report Type: 
  Country: None (occurrence: None)
  Receive Date: 20081208
  Receipt Date: 20081204
  Transmission Date: 20090506
  Serious: Yes (Death, Hospitalization)
  Sender: FDA-Public Use
  Company Number: US-BIOGENIDEC-2008BI024777

PATIENT
  Age: 53 Year
  Sex: Female

DRUGS (10)
  1. TYSABRI [Suspect]
     Indication: MULTIPLE SCLEROSIS
     Route: 042
     Dates: start: 20080107, end: 20080811
  2. AVONEX [Concomitant]
     Indication: MULTIPLE SCLEROSIS
     Route: 030
     Dates: start: 19990901
  3. LAMICTAL [Concomitant]
  4. GEODON [Concomitant]
  5. CELEXA [Concomitant]
  6. CEREFOLIN [Concomitant]
  7. VALIUM [Concomitant]
  8. ZANAFLEX [Concomitant]
  9. PRIMIDONE [Concomitant]
  10. METANX [Concomitant]

REACTIONS (2)
  - INTENTIONAL SELF-INJURY [None]
  - THERMAL BURN [None]
